FAERS Safety Report 13934961 (Version 10)
Quarter: 2020Q1

REPORT INFORMATION
  Report Type: Report from Study
  Country: US (occurrence: US)
  Receive Date: 20170905
  Receipt Date: 20200312
  Transmission Date: 20200409
  Serious: Yes (Life-Threatening, Hospitalization, Other)
  Sender: FDA-Public Use
  Company Number: US-AMGEN-USACT2017131083

PATIENT
  Age: 75 Year
  Sex: Male
  Weight: 78.5 kg

DRUGS (22)
  1. CARFILZOMIB [Suspect]
     Active Substance: CARFILZOMIB
     Indication: PLASMA CELL MYELOMA
     Dosage: 20 MILLIGRAM/SQ. METER, PER CHEMO REGIM
     Route: 065
     Dates: start: 20170608
  2. NEXIUM [Concomitant]
     Active Substance: ESOMEPRAZOLE MAGNESIUM
     Dosage: 20 MG, BID
     Route: 048
  3. ZYRTEC [Concomitant]
     Active Substance: CETIRIZINE HYDROCHLORIDE
     Dosage: 10 MG, BID
     Route: 048
  4. ONDANSETRON HCL [Concomitant]
     Active Substance: ONDANSETRON HYDROCHLORIDE
     Indication: NAUSEA
     Dosage: 4 MG, Q8H, PRN
     Dates: start: 20170608
  5. FERROUS SULFATE. [Concomitant]
     Active Substance: FERROUS SULFATE
     Dosage: 325 MG, QD
     Route: 048
  6. DILTIAZEM HCL [Concomitant]
     Active Substance: DILTIAZEM HYDROCHLORIDE
     Dosage: 120 MG, BID
     Dates: start: 20170710
  7. TORSEMIDE. [Concomitant]
     Active Substance: TORSEMIDE
     Dosage: 20 MG, BID PRN
     Route: 048
  8. BREO ELLIPTA [Concomitant]
     Active Substance: FLUTICASONE FUROATE\VILANTEROL TRIFENATATE
     Dosage: 1 PUFF, QD
     Route: 045
  9. NORCO [Concomitant]
     Active Substance: ACETAMINOPHEN\HYDROCODONE BITARTRATE
     Dosage: 5 MG, AS NECESSARY
     Route: 048
  10. LORAZEPAM. [Concomitant]
     Active Substance: LORAZEPAM
     Indication: NAUSEA
     Dosage: 1 MG, Q6H, AS NEEDED
     Route: 048
     Dates: start: 20170608
  11. LENALIDOMIDE [Suspect]
     Active Substance: LENALIDOMIDE
     Indication: PLASMA CELL MYELOMA
     Dosage: 25 MILLIGRAM, PER CHEMO REGIM
     Route: 065
  12. LENALIDOMIDE [Suspect]
     Active Substance: LENALIDOMIDE
     Dosage: 15 MILLIGRAM, PER CHEMO REGIM
     Route: 065
  13. DECADRON [Concomitant]
     Active Substance: DEXAMETHASONE
     Dosage: 40 MG, UNK (DAYS 1,8,15,22)
     Route: 048
     Dates: start: 20170608
  14. ZOMETA [Concomitant]
     Active Substance: ZOLEDRONIC ACID
     Dosage: 4 MG, Q28D
     Dates: start: 20170526
  15. TIKOSYN [Concomitant]
     Active Substance: DOFETILIDE
     Dosage: UNK
     Dates: end: 20170708
  16. DEXAMETHASONE. [Suspect]
     Active Substance: DEXAMETHASONE
     Dosage: 20 MILLIGRAM, PER CHEMO REGIM
     Route: 065
  17. DEXAMETHASONE. [Suspect]
     Active Substance: DEXAMETHASONE
     Indication: PLASMA CELL MYELOMA
     Dosage: 40 MILLIGRAM, PER CHEMO REGIM
     Route: 065
  18. ACYCLOVIR. [Concomitant]
     Active Substance: ACYCLOVIR
     Dosage: 400 MG, Q12H
     Route: 048
     Dates: start: 20170608
  19. CARFILZOMIB [Suspect]
     Active Substance: CARFILZOMIB
     Dosage: 27 MILLIGRAM/SQ. METER, PER CHEMO REGIM
     Route: 065
  20. PRADAXA [Concomitant]
     Active Substance: DABIGATRAN ETEXILATE MESYLATE
     Dosage: 75 MG, BID
     Route: 048
  21. LIPITOR [Concomitant]
     Active Substance: ATORVASTATIN CALCIUM
     Dosage: 40 MG, QD
     Route: 048
  22. REVLIMID [Concomitant]
     Active Substance: LENALIDOMIDE
     Dosage: 25 MG, QD (DAYS 1-21)
     Route: 048
     Dates: start: 20170608

REACTIONS (11)
  - Myocardial ischaemia [Recovered/Resolved]
  - Anaemia [Recovering/Resolving]
  - Cardiac failure congestive [Recovered/Resolved]
  - Fatigue [Recovering/Resolving]
  - Atrial fibrillation [Recovered/Resolved]
  - Atrial flutter [Recovered/Resolved]
  - Lymphocyte count decreased [Recovered/Resolved]
  - Pleural effusion [Recovering/Resolving]
  - White blood cell count decreased [Recovering/Resolving]
  - Febrile neutropenia [Recovered/Resolved]
  - Platelet count decreased [Recovered/Resolved]

NARRATIVE: CASE EVENT DATE: 20170707
